FAERS Safety Report 5760620-9 (Version None)
Quarter: 2008Q2

REPORT INFORMATION
  Report Type: 
  Country: None (occurrence: None)
  Receive Date: 20080602
  Receipt Date: 20080516
  Transmission Date: 20081010
  Serious: Yes (Hospitalization)
  Sender: FDA-Public Use
  Company Number: 2008S1007588

PATIENT
  Age: 71 Year
  Sex: Female
  Weight: 74.8435 kg

DRUGS (10)
  1. CLONIDINE HCL [Suspect]
     Indication: HYPERTENSION
     Dosage: 0.1 MG; AS NEEDED; ORAL
     Route: 048
     Dates: start: 20080209, end: 20080409
  2. METOPROLOL [Concomitant]
  3. LISINOPRIL [Concomitant]
  4. VALSARTAN [Concomitant]
  5. LOREZEPAM [Concomitant]
  6. MAGNESIUM [Concomitant]
  7. ASPIRIN [Concomitant]
  8. Q-10 CO-ENZYME [Concomitant]
  9. AVAPRO [Concomitant]
  10. AMLODIPINE [Concomitant]

REACTIONS (14)
  - ANXIETY [None]
  - ASTHENIA [None]
  - BLOOD PRESSURE INCREASED [None]
  - CRYING [None]
  - DEPRESSION [None]
  - DRUG INEFFECTIVE [None]
  - FATIGUE [None]
  - FEELING ABNORMAL [None]
  - FORMICATION [None]
  - HYPOTENSION [None]
  - NERVOUSNESS [None]
  - PHARMACEUTICAL PRODUCT COMPLAINT [None]
  - RESTLESSNESS [None]
  - SOMNOLENCE [None]
